FAERS Safety Report 25102197 (Version 1)
Quarter: 2025Q1

REPORT INFORMATION
  Report Type: Spontaneous
  Country: US (occurrence: US)
  Receive Date: 20250320
  Receipt Date: 20250320
  Transmission Date: 20250409
  Serious: Yes (Hospitalization, Other)
  Sender: MALLINCKRODT
  Company Number: US-MALLINCKRODT-MNK202501615

PATIENT
  Age: 16 Year
  Sex: Male

DRUGS (5)
  1. NITRIC OXIDE [Suspect]
     Active Substance: NITRIC OXIDE
     Indication: Hypoxia
     Route: 055
  2. MIDAZOLAM [Concomitant]
     Active Substance: MIDAZOLAM
  3. FENTANYL [Concomitant]
     Active Substance: FENTANYL
  4. KETAMINE [Concomitant]
     Active Substance: KETAMINE
  5. PROPOFOL [Concomitant]
     Active Substance: PROPOFOL

REACTIONS (5)
  - Lung transplant [Unknown]
  - Hypovolaemia [Unknown]
  - Right ventricular dysfunction [Unknown]
  - Drug ineffective [Unknown]
  - Product use issue [Unknown]
